FAERS Safety Report 13864286 (Version 2)
Quarter: 2017Q3

REPORT INFORMATION
  Report Type: Spontaneous
  Country: US (occurrence: US)
  Receive Date: 20170814
  Receipt Date: 20170825
  Transmission Date: 20171127
  Serious: Yes (Hospitalization, Disabling, Other)
  Sender: FDA-Public Use
  Company Number: US-LUNDBECK-DKLU2029912

PATIENT
  Sex: Male
  Weight: 10 kg

DRUGS (10)
  1. SABRIL [Suspect]
     Active Substance: VIGABATRIN
     Dosage: MG/KG/DAY IN DIVIDED DOSES
     Route: 048
     Dates: end: 201705
  2. ONFI [Suspect]
     Active Substance: CLOBAZAM
     Indication: LENNOX-GASTAUT SYNDROME
     Route: 065
     Dates: start: 201704
  3. SABRIL [Suspect]
     Active Substance: VIGABATRIN
     Route: 048
     Dates: start: 20170327
  4. MIRALAX [Concomitant]
     Active Substance: POLYETHYLENE GLYCOL 3350
     Indication: CONSTIPATION
     Route: 065
  5. TRANXENE T-TAB [Concomitant]
     Active Substance: CLORAZEPATE DIPOTASSIUM
     Indication: PRODUCT USED FOR UNKNOWN INDICATION
     Route: 065
     Dates: start: 201706
  6. TOPAMAX [Concomitant]
     Active Substance: TOPIRAMATE
     Indication: PRODUCT USED FOR UNKNOWN INDICATION
     Route: 065
     Dates: start: 201706, end: 201706
  7. SABRIL [Suspect]
     Active Substance: VIGABATRIN
     Indication: INFANTILE SPASMS
     Route: 048
     Dates: start: 20170327
  8. BANZEL [Concomitant]
     Active Substance: RUFINAMIDE
     Indication: PRODUCT USED FOR UNKNOWN INDICATION
     Route: 065
     Dates: start: 201707
  9. DIASTAT ACUDIAL [Concomitant]
     Active Substance: DIAZEPAM
     Indication: SEIZURE
     Dosage: 5-7.5-10 MG KIT
     Route: 065
     Dates: start: 2017
  10. SABRIL [Suspect]
     Active Substance: VIGABATRIN
     Dosage: MG/KG/DAY IN DIVIDED DOSES
     Route: 048
     Dates: start: 201703

REACTIONS (8)
  - Heart rate decreased [Recovered/Resolved]
  - Seizure [Recovering/Resolving]
  - Visual impairment [Not Recovered/Not Resolved]
  - Depressed level of consciousness [Recovering/Resolving]
  - Drug ineffective [Unknown]
  - Developmental delay [Not Recovered/Not Resolved]
  - Petit mal epilepsy [Unknown]
  - Condition aggravated [Recovering/Resolving]

NARRATIVE: CASE EVENT DATE: 2017
